FAERS Safety Report 5463515-3 (Version None)
Quarter: 2007Q3

REPORT INFORMATION
  Report Type: 
  Country: None (occurrence: None)
  Receive Date: 20070920
  Receipt Date: 20070910
  Transmission Date: 20080115
  Serious: Yes (Other)
  Sender: FDA-Public Use
  Company Number: CA-PFIZER INC-2007076788

PATIENT
  Age: 59 Year
  Sex: Female

DRUGS (5)
  1. LIPITOR [Suspect]
     Indication: BLOOD CHOLESTEROL
     Route: 048
  2. NOVOSPIROZINE [Concomitant]
  3. CELEBREX [Concomitant]
     Indication: FIBROMYALGIA
  4. LOSEC [Concomitant]
  5. RHINOCORT [Concomitant]
     Indication: CHRONIC SINUSITIS

REACTIONS (6)
  - FATIGUE [None]
  - FIBROMYALGIA [None]
  - MUSCLE SPASMS [None]
  - MUSCULOSKELETAL STIFFNESS [None]
  - PAIN IN EXTREMITY [None]
  - SENSATION OF HEAVINESS [None]
